FAERS Safety Report 6657219-9 (Version None)
Quarter: 2010Q1

REPORT INFORMATION
  Report Type: 
  Country: None (occurrence: None)
  Receive Date: 20100326
  Receipt Date: 20100316
  Transmission Date: 20100710
  Serious: Yes (Hospitalization)
  Sender: FDA-Public Use
  Company Number: B0642426A

PATIENT
  Age: 28 Year
  Sex: Female

DRUGS (3)
  1. PHENOXYBENZAMINE HCI (PHENOXYBENZAMINE HCI) (FORMULATION UNKNOWN) (GEN [Suspect]
     Indication: ADRENAL MASS
  2. INNOPRAN XL (FORMULATION UNKNOWN)  (PROPRANOLOL HYDROCHLORIDE) [Suspect]
     Indication: TACHYCARDIA
  3. METHYLDOPA [Suspect]
     Indication: HYPERTENSION

REACTIONS (8)
  - DISSEMINATED INTRAVASCULAR COAGULATION [None]
  - DRUG EXPOSURE DURING PREGNANCY [None]
  - HYPERTENSIVE ENCEPHALOPATHY [None]
  - INTRA-UTERINE DEATH [None]
  - PLACENTA PRAEVIA [None]
  - PREMATURE SEPARATION OF PLACENTA [None]
  - RENAL FAILURE [None]
  - TACHYCARDIA [None]
